FAERS Safety Report 5715844-3 (Version None)
Quarter: 2008Q2

REPORT INFORMATION
  Report Type: 
  Country: None (occurrence: None)
  Receive Date: 20080424
  Receipt Date: 20080418
  Transmission Date: 20081010
  Serious: No
  Sender: FDA-Public Use
  Company Number: US-BAYER-200820456NA

PATIENT
  Age: 39 Year
  Sex: Female
  Weight: 64 kg

DRUGS (2)
  1. MAGNEVIST [Suspect]
     Indication: NUCLEAR MAGNETIC RESONANCE IMAGING
     Route: 042
     Dates: start: 20080404, end: 20080404
  2. MAGNEVIST [Suspect]
     Route: 042
     Dates: start: 20080407, end: 20080407

REACTIONS (9)
  - AGITATION [None]
  - ARTHRALGIA [None]
  - DIZZINESS [None]
  - HEADACHE [None]
  - HOT FLUSH [None]
  - MENTAL IMPAIRMENT [None]
  - NAUSEA [None]
  - PRURITUS GENERALISED [None]
  - SOMNOLENCE [None]
